FAERS Safety Report 10722187 (Version 1)
Quarter: 2015Q1

REPORT INFORMATION
  Report Type: Spontaneous
  Country: JP (occurrence: JP)
  Receive Date: 20150119
  Receipt Date: 20150119
  Transmission Date: 20150721
  Serious: Yes (Death)
  Sender: FDA-Public Use
  Company Number: JP-ACTELION-A-CH2015-110949

PATIENT
  Age: 80 Year
  Sex: Male

DRUGS (3)
  1. OXYGEN. [Concomitant]
     Active Substance: OXYGEN
  2. AMBROXOL HYDROCHLORIDE [Suspect]
     Active Substance: AMBROXOL HYDROCHLORIDE
     Indication: CHRONIC OBSTRUCTIVE PULMONARY DISEASE
     Dosage: 135 MG, UNK
     Route: 048
  3. TRACLEER [Suspect]
     Active Substance: BOSENTAN\BOSENTAN MONOHYDRATE
     Indication: PULMONARY ARTERIAL HYPERTENSION
     Dosage: 62.5 MG, BID
     Route: 048
     Dates: start: 20141029, end: 20150108

REACTIONS (1)
  - Chronic obstructive pulmonary disease [Fatal]
